FAERS Safety Report 13544748 (Version 1)
Quarter: 2017Q2

REPORT INFORMATION
  Report Type: Spontaneous
  Country: US (occurrence: US)
  Receive Date: 20170515
  Receipt Date: 20170515
  Transmission Date: 20170830
  Serious: No
  Sender: FDA-Public Use
  Company Number: US-009507513-1705USA002895

PATIENT
  Sex: Female

DRUGS (1)
  1. JANUVIA [Suspect]
     Active Substance: SITAGLIPTIN PHOSPHATE
     Dosage: 50 MG, EVERY OTHER DAY
     Route: 048
     Dates: end: 20170504

REACTIONS (3)
  - Rash [Unknown]
  - Local swelling [Unknown]
  - Product use issue [Unknown]
